FAERS Safety Report 6698396-3 (Version None)
Quarter: 2010Q2

REPORT INFORMATION
  Report Type: 
  Country: None (occurrence: None)
  Receive Date: 20100426
  Receipt Date: 20100426
  Transmission Date: 20101027
  Serious: Yes (Other)
  Sender: FDA-Public Use
  Company Number: None

PATIENT
  Age: 59 Year
  Sex: Female
  Weight: 89.8122 kg

DRUGS (1)
  1. BACTROBAN [Suspect]
     Indication: NASAL OPERATION

REACTIONS (8)
  - DRUG INEFFECTIVE [None]
  - DRY EYE [None]
  - EYE PAIN [None]
  - HEADACHE [None]
  - INTRAOCULAR PRESSURE INCREASED [None]
  - NEUROLOGICAL EYELID DISORDER [None]
  - OPTIC NEURITIS [None]
  - PHOTOPHOBIA [None]
